FAERS Safety Report 8605531-6 (Version None)
Quarter: 2012Q3

REPORT INFORMATION
  Report Type: 
  Country: None (occurrence: None)
  Receive Date: 20120820
  Receipt Date: 20120810
  Transmission Date: 20120928
  Serious: Yes (Other)
  Sender: FDA-Public Use
  Company Number: US-ASTRAZENECA-2012SE57169

PATIENT
  Age: 19 Year
  Sex: Female

DRUGS (4)
  1. PREDNISONE TAB [Concomitant]
  2. CELLCEPT [Concomitant]
  3. ENTOCORT EC [Suspect]
     Route: 048
  4. URSODIOL [Concomitant]

REACTIONS (4)
  - LIVER FUNCTION TEST ABNORMAL [None]
  - HEPATIC CIRRHOSIS [None]
  - FATIGUE [None]
  - AUTOIMMUNE HEPATITIS [None]
